FAERS Safety Report 4512397-2 (Version None)
Quarter: 2004Q4

REPORT INFORMATION
  Report Type: 
  Country: None (occurrence: None)
  Receive Date: 20041123
  Receipt Date: 20041110
  Transmission Date: 20050328
  Serious: Yes (Other)
  Sender: FDA-Public Use
  Company Number: 2004-DE-05832GD

PATIENT
  Sex: Male

DRUGS (5)
  1. ASPIRIN [Suspect]
     Dosage: 150 MG
  2. IBUPROFEN [Suspect]
     Dosage: 1200 MG
  3. NAPROXEN [Suspect]
     Dosage: 500 MG
  4. DICLOFENAC (DICLOFENAC) [Suspect]
     Dosage: 75 MG
  5. KETOPROFEN [Suspect]
     Dosage: 200 MG

REACTIONS (1)
  - OESOPHAGEAL STENOSIS [None]
